FAERS Safety Report 9236440 (Version 3)
Quarter: 2013Q3

REPORT INFORMATION
  Report Type: Report from Study
  Country: DE (occurrence: DE)
  Receive Date: 20130417
  Receipt Date: 20130906
  Transmission Date: 20140515
  Serious: Yes (Life-Threatening, Hospitalization, Other)
  Sender: FDA-Public Use
  Company Number: PHHO2013DE001294

PATIENT
  Age: 63 Year
  Sex: Male
  Weight: 63 kg

DRUGS (24)
  1. TACROLIMUS [Suspect]
     Indication: LUNG TRANSPLANT
     Dosage: 2 MG, BID
     Route: 048
     Dates: start: 20120613
  2. PREDNISOLONE SANDOZ [Suspect]
     Indication: LUNG TRANSPLANT
     Dosage: 7.5 MG, QD
     Route: 048
     Dates: start: 20120613
  3. NO TREATMENT RECEIVED [Suspect]
     Indication: LUNG TRANSPLANT
     Dosage: UNK, NO TREATMENT
  4. TICAGRELOR [Suspect]
     Indication: THROMBOSIS PROPHYLAXIS
     Dosage: 90 MG, BID
     Dates: start: 20121225, end: 20130510
  5. FALITHROM [Suspect]
     Indication: THROMBOSIS PROPHYLAXIS
     Dosage: UNK
     Dates: end: 20130113
  6. FALITHROM [Suspect]
     Dosage: UNK
     Dates: start: 201304, end: 20130508
  7. XARELTO [Suspect]
     Indication: THROMBOSIS PROPHYLAXIS
     Dosage: 20 MG, UNK
     Dates: start: 20130507, end: 20130510
  8. CELLCEPT [Concomitant]
     Indication: LUNG TRANSPLANT
     Dosage: 2 G, UNK
     Route: 048
     Dates: start: 20120613
  9. AMPHO MORONAL [Concomitant]
     Indication: PROPHYLAXIS
     Dates: start: 20120616
  10. ACTRAPID [Concomitant]
     Indication: DIABETES MELLITUS
  11. COTRIM [Concomitant]
     Indication: PROPHYLAXIS
     Dates: start: 20120613
  12. FOSAMAX [Concomitant]
     Indication: OSTEOPOROSIS
     Dosage: 70
  13. PANTOZOL [Concomitant]
     Indication: PROPHYLAXIS
     Dosage: 20
  14. ACICLOVIR [Concomitant]
     Indication: PROPHYLAXIS
     Dosage: 200
     Dates: start: 20120613
  15. VALCYTE [Concomitant]
     Indication: PROPHYLAXIS
     Dosage: 450
     Dates: start: 20120613
  16. SEMPERA [Concomitant]
     Indication: PROPHYLAXIS
     Dosage: 100
     Dates: start: 20120613
  17. SIFROL [Concomitant]
     Indication: RESTLESS LEGS SYNDROME
     Dosage: 0.7
  18. RAMIPRIL [Concomitant]
     Indication: HYPERTENSION
     Dosage: 5
  19. METHIZOL [Concomitant]
     Indication: HYPERTHYROIDISM
     Dosage: 20
  20. TAMSULOSIN [Concomitant]
     Indication: RENAL IMPAIRMENT
     Dosage: 0.4
     Dates: start: 201206
  21. CORDAREX [Concomitant]
     Indication: ATRIAL FIBRILLATION
     Dosage: 200
  22. TOREM [Concomitant]
     Indication: HYPERTENSION
     Dosage: 10
  23. LEVEMIR [Concomitant]
     Indication: DIABETES MELLITUS
     Dosage: UNK
  24. CLEXANE [Concomitant]
     Indication: THROMBOSIS PROPHYLAXIS
     Dosage: 0.6

REACTIONS (5)
  - Acute myocardial infarction [Recovered/Resolved]
  - Haemoptysis [Recovered/Resolved]
  - Duodenal ulcer haemorrhage [Recovered/Resolved]
  - Cardiac disorder [Recovering/Resolving]
  - Coronary artery disease [Not Recovered/Not Resolved]
